FAERS Safety Report 15023702 (Version 1)
Quarter: 2018Q2

REPORT INFORMATION
  Report Type: Spontaneous
  Country: US (occurrence: US)
  Receive Date: 20180618
  Receipt Date: 20180618
  Transmission Date: 20180711
  Serious: Yes (Hospitalization, Other)
  Sender: FDA-Public Use
  Company Number: US-MYLANLABS-2018M1041077

PATIENT
  Age: 30 Year
  Sex: Male

DRUGS (2)
  1. DEXAMETHASONE. [Suspect]
     Active Substance: DEXAMETHASONE
     Indication: BACK PAIN
     Dosage: 1 ML OF 10MG/ML; LUMBAR TRANSFORAMINAL EPIDURAL INJECTION CONTAINING DEXAMETHASONE
     Route: 008
  2. LIDOCAINE. [Concomitant]
     Active Substance: LIDOCAINE
     Indication: PRODUCT USED FOR UNKNOWN INDICATION
     Dosage: 1 ML, UNK
     Route: 008

REACTIONS (5)
  - Electrocardiogram T wave abnormal [Recovered/Resolved]
  - Hyperglycaemia [Recovered/Resolved]
  - Quadriplegia [Recovered/Resolved]
  - Hypokalaemia [Recovered/Resolved]
  - Sinus arrhythmia [Recovered/Resolved]
